FAERS Safety Report 7030603-X (Version None)
Quarter: 2010Q4

REPORT INFORMATION
  Report Type: 
  Country: None (occurrence: None)
  Receive Date: 20101006
  Receipt Date: 20100927
  Transmission Date: 20110411
  Serious: Yes (Other)
  Sender: FDA-Public Use
  Company Number: US-ROCHE-729638

PATIENT
  Sex: Female
  Weight: 64.9 kg

DRUGS (1)
  1. ACTEMRA [Suspect]
     Dosage: FORM: INFUSION
     Route: 065

REACTIONS (5)
  - HYPOAESTHESIA [None]
  - ONYCHOMALACIA [None]
  - PARAESTHESIA [None]
  - SKIN DISCOLOURATION [None]
  - SKIN NECROSIS [None]
